FAERS Safety Report 24322736 (Version 1)
Quarter: 2024Q3

REPORT INFORMATION
  Report Type: Spontaneous
  Country: US (occurrence: US)
  Receive Date: 20240916
  Receipt Date: 20240916
  Transmission Date: 20241017
  Serious: No
  Sender: MERCK
  Company Number: US-009507513-2408USA009433

PATIENT
  Sex: Male

DRUGS (3)
  1. KEYTRUDA [Suspect]
     Active Substance: PEMBROLIZUMAB
     Indication: Renal cell carcinoma
     Dosage: 200 MILLIGRAM, 1 X 3 WEEKS
     Route: 042
     Dates: start: 20231218
  2. AXITINIB [Suspect]
     Active Substance: AXITINIB
     Indication: Renal cell carcinoma
     Dosage: 5 MILLIGRAM, 2 X DAY
     Route: 048
     Dates: start: 20231218
  3. AXITINIB [Suspect]
     Active Substance: AXITINIB
     Dosage: 3 MILLIGRAM, TWICE A DAY
     Route: 048
     Dates: start: 20240418

REACTIONS (1)
  - Fatigue [Not Recovered/Not Resolved]

NARRATIVE: CASE EVENT DATE: 20240418
